FAERS Safety Report 25442802 (Version 1)
Quarter: 2025Q2

REPORT INFORMATION
  Report Type: Report from Study
  Country: US (occurrence: US)
  Receive Date: 20250617
  Receipt Date: 20250617
  Transmission Date: 20250716
  Serious: Yes (Other)
  Sender: ALEXION PHARMACEUTICALS
  Company Number: US-AstraZeneca-CH-00890193A

PATIENT
  Weight: 82.993 kg

DRUGS (1)
  1. OLAPARIB [Suspect]
     Active Substance: OLAPARIB
     Indication: Breast cancer female
     Dosage: 200 MILLIGRAM, BID

REACTIONS (2)
  - Full blood count decreased [Not Recovered/Not Resolved]
  - Taste disorder [Not Recovered/Not Resolved]
